FAERS Safety Report 8945842 (Version 2)
Quarter: 2014Q2

REPORT INFORMATION
  Report Type: Report from Study
  Country: MX (occurrence: MX)
  Receive Date: 20121205
  Receipt Date: 20130802
  Transmission Date: 20141212
  Serious: Yes (Hospitalization, Other)
  Sender: FDA-Public Use
  Company Number: PHHY2012MX111161

PATIENT
  Age: 80 Year
  Sex: Female

DRUGS (12)
  1. CO-DIOVAN [Suspect]
     Indication: HYPERTENSION
     Dosage: 1 DF (160/12.5MG) DAILY
     Route: 048
     Dates: start: 2007
  2. EUTIROX [Concomitant]
     Indication: THYROID DISORDER
     Dosage: 112 MG, DAILY
     Dates: start: 2005
  3. VYTORIN [Concomitant]
     Dosage: 1 DF, Q72H
  4. AVANDAMET [Concomitant]
     Indication: BLOOD GLUCOSE ABNORMAL
     Dosage: 1 DF, DAILY
     Dates: start: 2005
  5. PRAZOSIN [Concomitant]
     Indication: CARDIAC DISORDER
     Dosage: 2 MG, Q72H
     Dates: start: 2009
  6. ALTRULINE [Concomitant]
     Indication: ANTIDEPRESSANT THERAPY
     Dosage: 50 MG, DAILY
     Dates: start: 2009
  7. LIVIAL [Concomitant]
     Dosage: 2 MG, Q72H
  8. ASPIRINA [Concomitant]
     Dosage: 81 MG, DAILY
  9. LAGRIFILM PLUS [Concomitant]
     Indication: GLAUCOMA
     Dosage: 1 DF, DAILY
  10. ESTAT [Concomitant]
     Indication: GLAUCOMA
     Dosage: UNK UKN, UNK
     Dates: start: 2011
  11. COMBIGAN D [Concomitant]
     Indication: GLAUCOMA
     Dosage: UNK UKN, UNK
     Dates: start: 2005
  12. OPTIVISION                         /07302801/ [Concomitant]
     Indication: GLAUCOMA
     Dosage: 2 DF, UNK
     Dates: start: 2007

REACTIONS (3)
  - Intervertebral disc injury [Unknown]
  - Pain in extremity [Not Recovered/Not Resolved]
  - Arthralgia [Not Recovered/Not Resolved]
